FAERS Safety Report 16445977 (Version 1)
Quarter: 2019Q2

REPORT INFORMATION
  Report Type: Spontaneous
  Country: US (occurrence: US)
  Receive Date: 20190508
  Receipt Date: 20190508
  Transmission Date: 20190711
  Serious: Yes (Hospitalization)
  Sender: FDA-Public Use
  Company Number: None

PATIENT
  Age: 8 Year
  Sex: Male
  Weight: 18.8 kg

DRUGS (3)
  1. CYCLOPHOSPHAMIDE. [Suspect]
     Active Substance: CYCLOPHOSPHAMIDE
     Dates: end: 20190416
  2. DACTINOMYCIN [Suspect]
     Active Substance: DACTINOMYCIN
     Dates: end: 20190416
  3. VINCRISTINE [Suspect]
     Active Substance: VINCRISTINE
     Dosage: ?          OTHER DOSE:1.2MG;?
     Dates: end: 20190424

REACTIONS (7)
  - Feeding intolerance [None]
  - Constipation [None]
  - Vomiting [None]
  - Chest pain [None]
  - Abdominal pain [None]
  - Gastrooesophageal reflux disease [None]
  - Treatment noncompliance [None]

NARRATIVE: CASE EVENT DATE: 20190425
